FAERS Safety Report 7038153-1 (Version None)
Quarter: 2010Q4

REPORT INFORMATION
  Report Type: 
  Country: None (occurrence: None)
  Receive Date: 20101011
  Receipt Date: 20101004
  Transmission Date: 20110411
  Serious: Yes (Death, Other)
  Sender: FDA-Public Use
  Company Number: US-AMGEN-QUU433983

PATIENT
  Sex: Female

DRUGS (1)
  1. NPLATE [Suspect]
     Indication: IDIOPATHIC THROMBOCYTOPENIC PURPURA
     Dates: start: 20100616, end: 20100709

REACTIONS (5)
  - ACUTE RESPIRATORY FAILURE [None]
  - HAEMOGLOBIN DECREASED [None]
  - LIVER FUNCTION TEST ABNORMAL [None]
  - PLATELET COUNT DECREASED [None]
  - WHITE BLOOD CELL COUNT INCREASED [None]
